FAERS Safety Report 9203180 (Version 1)
Quarter: 2013Q1

REPORT INFORMATION
  Report Type: Spontaneous
  Country: RU (occurrence: None)
  Receive Date: 20130328
  Receipt Date: 20130328
  Transmission Date: 20140127
  Serious: Yes (Life-Threatening)
  Sender: FDA-Public Use
  Company Number: 2013-05198

PATIENT
  Age: 67 Year
  Sex: Female

DRUGS (4)
  1. PACLITAXEL [Suspect]
     Indication: BREAST CANCER
     Route: 041
  2. ONDANSETRON (ONDANSETRON) [Concomitant]
  3. DEXAMETHASONE (DEXAMETHASONE SODIUM PHOSPHATE) [Concomitant]
  4. ZOLEDRONIC ACID MONOHYDRATE (ZOLEDRONIC ACID MONOHYDRATE) [Concomitant]

REACTIONS (1)
  - Asphyxia [None]
